FAERS Safety Report 6384349-1 (Version None)
Quarter: 2009Q3

REPORT INFORMATION
  Report Type: 
  Country: None (occurrence: None)
  Receive Date: 20090929
  Receipt Date: 20090922
  Transmission Date: 20100115
  Serious: Yes (Death)
  Sender: FDA-Public Use
  Company Number: 2009SP024338

PATIENT
  Age: 81 Year
  Sex: Male

DRUGS (21)
  1. NITRO-DUR [Suspect]
     Indication: CARDIAC FAILURE
     Dosage: 5 MG; TDER
     Dates: start: 20090813
  2. NITRO-DUR [Suspect]
     Indication: PROPHYLAXIS
     Dosage: 5 MG; TDER
     Dates: start: 20090813
  3. NITRO-DUR [Suspect]
     Indication: VENTRICULAR DYSFUNCTION
     Dosage: 5 MG; TDER
     Dates: start: 20090813
  4. ADIRO (CON.) [Concomitant]
  5. INSULIN (CON.) [Concomitant]
  6. CARDURAN (CON.) [Concomitant]
  7. PENICILLIN (CON.) [Concomitant]
  8. CARDYL (CON.) [Concomitant]
  9. CLEXANE (CON.) [Concomitant]
  10. SEGURIL (CON.) /00032601/ [Concomitant]
  11. ALDACTONE (CON.) /00006201/ [Concomitant]
  12. RENITEC (CON.) /00574901/ [Concomitant]
  13. HYDRAPRESS (CON.) [Concomitant]
  14. URBASON (CON.) /00049601/ [Concomitant]
  15. OMEPRAZOLE (CON.) [Concomitant]
  16. AMOXICILLIN-CLAVULANT ACID (CON.) /00082801 [Concomitant]
  17. FLUMIL (CON.) [Concomitant]
  18. TERMALGIN (CON.) [Concomitant]
  19. ATROVENT (CON.) [Concomitant]
  20. ENEMA CASEN (CON.) /00129701 [Concomitant]
  21. EMULIQUEN SIMPLE (CON.) /00887401/ [Concomitant]

REACTIONS (9)
  - GENERAL PHYSICAL HEALTH DETERIORATION [None]
  - HEADACHE [None]
  - HYPERHIDROSIS [None]
  - LEFT VENTRICULAR DYSFUNCTION [None]
  - MOBILITY DECREASED [None]
  - PNEUMONIA [None]
  - PYREXIA [None]
  - RESPIRATORY FAILURE [None]
  - TACHYCARDIA [None]
